FAERS Safety Report 5795547-X (Version None)
Quarter: 2008Q2

REPORT INFORMATION
  Report Type: 
  Country: None (occurrence: None)
  Receive Date: 20080630
  Receipt Date: 20080619
  Transmission Date: 20081010
  Serious: Yes (Hospitalization, Other)
  Sender: FDA-Public Use
  Company Number: PHBS2008US04881

PATIENT
  Age: 75 Year
  Sex: Male

DRUGS (12)
  1. CLOZAPINE [Suspect]
     Indication: SCHIZOPHRENIA
     Dosage: 300 MG PER DAY
     Route: 065
  2. CLOZAPINE [Suspect]
     Dosage: 150 MG PER DAY
     Route: 065
  3. AMIODARONE HCL [Suspect]
     Indication: VENTRICULAR TACHYCARDIA
     Dosage: 150 MG
     Route: 042
  4. AMIODARONE HCL [Suspect]
     Dosage: 400 MG PER DAY
     Route: 065
  5. DIVALPROEX SODIUM [Concomitant]
     Indication: SCHIZOPHRENIA
     Dosage: 1000 MG PER DAY
     Route: 065
  6. MAGNESIUM [Concomitant]
     Indication: VENTRICULAR TACHYCARDIA
     Dosage: UNK, UNK
     Route: 065
  7. IPRATROPIUM BROMIDE [Concomitant]
     Dosage: UNK,UNK
     Route: 065
  8. ALBUTEROL [Concomitant]
     Dosage: UNK, UNK
     Route: 065
  9. METOPROLOL [Concomitant]
     Dosage: UNK,UNK
     Route: 065
  10. PANTOPRAZOLE SODIUM [Concomitant]
     Dosage: UNK,UNK
     Route: 065
  11. MAGNESIUM GLUCONATE [Concomitant]
     Dosage: UNK,UNK
     Route: 065
  12. IRON SUPPLEMENTS [Concomitant]
     Dosage: UNK,UNK
     Route: 065

REACTIONS (13)
  - ANTIPSYCHOTIC DRUG LEVEL INCREASED [None]
  - CHILLS [None]
  - COUGH [None]
  - DRUG INTERACTION [None]
  - DYSPNOEA [None]
  - HYPOXIA [None]
  - IMPLANTABLE DEFIBRILLATOR INSERTION [None]
  - PERICARDIAL EFFUSION [None]
  - PERICARDIAL EXCISION [None]
  - PERICARDIAL HAEMORRHAGE [None]
  - SCHIZOPHRENIA, DISORGANISED TYPE [None]
  - TANGENTIALITY [None]
  - VENTRICULAR TACHYCARDIA [None]
